FAERS Safety Report 5130011-2 (Version None)
Quarter: 2006Q4

REPORT INFORMATION
  Report Type: 
  Country: None (occurrence: None)
  Receive Date: 20061013
  Receipt Date: 20061002
  Transmission Date: 20070319
  Serious: Yes (Hospitalization)
  Sender: FDA-Public Use
  Company Number: 2004225699CA

PATIENT
  Age: 33 Year
  Sex: Female
  Weight: 85.3 kg

DRUGS (1)
  1. FRAGMIN [Suspect]
     Indication: THROMBOSIS PROPHYLAXIS
     Dosage: 10000 I.U. (5000 I.U., 2 IN 1 D), SUBCUTANEOUS
     Route: 058
     Dates: start: 20031213

REACTIONS (5)
  - DISORIENTATION [None]
  - DRUG EXPOSURE DURING PREGNANCY [None]
  - FALL [None]
  - HEADACHE [None]
  - LOSS OF CONSCIOUSNESS [None]
